FAERS Safety Report 20189929 (Version 2)
Quarter: 2021Q4

REPORT INFORMATION
  Report Type: Spontaneous
  Country: JP (occurrence: JP)
  Receive Date: 20211215
  Receipt Date: 20211222
  Transmission Date: 20220304
  Serious: Yes (Other)
  Sender: FDA-Public Use
  Company Number: JP-PFIZER INC-202101715031

PATIENT
  Age: 72 Year
  Sex: Male
  Weight: 64 kg

DRUGS (2)
  1. OXALIPLATIN [Suspect]
     Active Substance: OXALIPLATIN
     Indication: Colon cancer
     Dosage: 231 MG, DAILY
     Route: 041
     Dates: start: 20211021
  2. AVASTIN [Suspect]
     Active Substance: BEVACIZUMAB
     Indication: Colon cancer
     Dosage: 320 MG, DAILY
     Route: 041
     Dates: start: 20211021

REACTIONS (3)
  - Urinary retention [Recovered/Resolved]
  - Dysuria [Recovering/Resolving]
  - Hypersensitivity [Unknown]

NARRATIVE: CASE EVENT DATE: 20211021
